FAERS Safety Report 4440919-9 (Version None)
Quarter: 2004Q3

REPORT INFORMATION
  Report Type: 
  Country: None (occurrence: None)
  Receive Date: 20040728
  Receipt Date: 20040422
  Transmission Date: 20050211
  Serious: No
  Sender: FDA-Public Use
  Company Number: USA040465692

PATIENT
  Age: 10 Year
  Sex: Male
  Weight: 34 kg

DRUGS (2)
  1. STRATTERA [Suspect]
     Indication: ATTENTION DEFICIT/HYPERACTIVITY DISORDER
     Dosage: 50 MG DAY
     Dates: start: 20030201
  2. ADDERALL 20 [Concomitant]

REACTIONS (6)
  - ABNORMAL BEHAVIOUR [None]
  - DRUG INEFFECTIVE [None]
  - EMOTIONAL DISORDER [None]
  - MOOD SWINGS [None]
  - PRESCRIBED OVERDOSE [None]
  - SOMNOLENCE [None]
